FAERS Safety Report 15972589 (Version 1)
Quarter: 2019Q1

REPORT INFORMATION
  Report Type: Spontaneous
  Country: FR (occurrence: FR)
  Receive Date: 20190216
  Receipt Date: 20190216
  Transmission Date: 20190418
  Serious: Yes (Hospitalization)
  Sender: FDA-Public Use
  Company Number: FR-TEVA-2019-FR-1011963

PATIENT
  Age: 40 Year
  Sex: Male

DRUGS (4)
  1. VANCOMYCINE [Suspect]
     Active Substance: VANCOMYCIN
     Indication: LUNG INFECTION
     Route: 042
     Dates: start: 20180501, end: 20180511
  2. TAZOCILLINE [Suspect]
     Active Substance: PIPERACILLIN SODIUM\TAZOBACTAM SODIUM
     Indication: LUNG INFECTION
     Route: 042
     Dates: start: 20180428, end: 20180511
  3. AMIKACINE MYLAN [Concomitant]
     Active Substance: AMIKACIN
     Indication: LUNG INFECTION
     Dates: start: 20180428, end: 20180501
  4. IOMERON [Concomitant]
     Active Substance: IOMEPROL
     Indication: SCAN
     Route: 042
     Dates: start: 20180508, end: 20180519

REACTIONS (6)
  - Abdominal pain [Recovered/Resolved]
  - Pyrexia [Recovered/Resolved]
  - Pruritus [Recovered/Resolved]
  - Rash maculo-papular [Recovered/Resolved]
  - Hepatocellular injury [Recovered/Resolved]
  - Cholestasis [Recovered/Resolved]

NARRATIVE: CASE EVENT DATE: 20180509
